FAERS Safety Report 6043759-2 (Version None)
Quarter: 2009Q1

REPORT INFORMATION
  Report Type: 
  Country: None (occurrence: None)
  Receive Date: 20090120
  Receipt Date: 20090112
  Transmission Date: 20090719
  Serious: Yes (Disabling)
  Sender: FDA-Public Use
  Company Number: PHHY2008PT28438

PATIENT
  Sex: Female

DRUGS (2)
  1. EXELON [Suspect]
     Indication: DEMENTIA ALZHEIMER'S TYPE
     Dosage: 4.6 MG/24 HOURS
     Route: 062
     Dates: start: 20081009, end: 20081013
  2. LEXOTAN [Concomitant]
     Indication: ANXIETY
     Dosage: 3 MG/DAY
     Route: 048
     Dates: start: 20081009

REACTIONS (6)
  - BALANCE DISORDER [None]
  - COGNITIVE DISORDER [None]
  - CONFUSIONAL STATE [None]
  - FATIGUE [None]
  - PULMONARY EMBOLISM [None]
  - RESTLESSNESS [None]
